FAERS Safety Report 22346592 (Version 1)
Quarter: 2023Q2

REPORT INFORMATION
  Report Type: Spontaneous
  Country: RU (occurrence: RU)
  Receive Date: 20230520
  Receipt Date: 20230520
  Transmission Date: 20230722
  Serious: Yes (Other)
  Sender: FDA-Public Use
  Company Number: RU-MACLEODS PHARMACEUTICALS US LTD-MAC2023041364

PATIENT

DRUGS (12)
  1. CELECOXIB [Suspect]
     Active Substance: CELECOXIB
     Indication: Medulloblastoma
     Dosage: 100 MILLIGRAM, BID (AT A DOSE OF 100 MG TWICE A DAY)
     Route: 048
  2. CELECOXIB [Suspect]
     Active Substance: CELECOXIB
     Indication: Metastases to spine
  3. CELECOXIB [Suspect]
     Active Substance: CELECOXIB
     Indication: Brain cancer metastatic
  4. SIROLIMUS [Suspect]
     Active Substance: SIROLIMUS
     Indication: Metastases to spine
     Dosage: UNK, QD (INITIAL DOSE OF 2 MG/M2/DAY)
     Route: 048
  5. SIROLIMUS [Suspect]
     Active Substance: SIROLIMUS
     Indication: Medulloblastoma
     Dosage: UNK, QD (INITIAL DOSE OF 2 MG/M2/DAY)
     Route: 048
  6. SIROLIMUS [Suspect]
     Active Substance: SIROLIMUS
     Indication: Brain cancer metastatic
  7. CYCLOPHOSPHAMIDE [Suspect]
     Active Substance: CYCLOPHOSPHAMIDE
     Indication: Metastases to spine
     Dosage: UNK (52.5 MG/KG 1 CYCLE (2.5 MG/KG/DAY FROM THE 4TH TO THE 6TH WEEK OF EACH CYCLE)), 2.5 MG/KG/DAY F
     Route: 048
  8. CYCLOPHOSPHAMIDE [Suspect]
     Active Substance: CYCLOPHOSPHAMIDE
     Indication: Medulloblastoma
  9. CYCLOPHOSPHAMIDE [Suspect]
     Active Substance: CYCLOPHOSPHAMIDE
     Indication: Brain cancer metastatic
  10. ETOPOSIDE [Suspect]
     Active Substance: ETOPOSIDE
     Indication: Metastases to spine
     Dosage: UNK (1050 MG/M2, 1 CYCLE (ALTERNATE CYCLES OF ETOPOSIDE 50 MG/M2/DAY FOR THE FIRST 3 WEEKS))
     Route: 048
  11. ETOPOSIDE [Suspect]
     Active Substance: ETOPOSIDE
     Indication: Medulloblastoma
  12. ETOPOSIDE [Suspect]
     Active Substance: ETOPOSIDE
     Indication: Brain cancer metastatic

REACTIONS (2)
  - Neutropenia [Unknown]
  - Thrombocytopenia [Unknown]
